FAERS Safety Report 13752522 (Version 3)
Quarter: 2017Q3

REPORT INFORMATION
  Report Type: Report from Study
  Country: US (occurrence: US)
  Receive Date: 20170713
  Receipt Date: 20170926
  Transmission Date: 20171127
  Serious: No
  Sender: FDA-Public Use
  Company Number: US-JNJFOC-20170708262

PATIENT
  Age: 13 Year
  Sex: Male
  Weight: 39.92 kg

DRUGS (1)
  1. REMICADE [Suspect]
     Active Substance: INFLIXIMAB
     Indication: INFLAMMATORY BOWEL DISEASE
     Route: 042
     Dates: start: 20101227

REACTIONS (1)
  - Central venous catheterisation [Not Recovered/Not Resolved]

NARRATIVE: CASE EVENT DATE: 20161010
